FAERS Safety Report 18154301 (Version 3)
Quarter: 2020Q3

REPORT INFORMATION
  Report Type: Report from Study
  Country: PT (occurrence: PT)
  Receive Date: 20200817
  Receipt Date: 20200923
  Transmission Date: 20201103
  Serious: Yes (Hospitalization)
  Sender: FDA-Public Use
  Company Number: PT-ROCHE-2653846

PATIENT
  Age: 47 Year
  Sex: Male
  Weight: 74 kg

DRUGS (14)
  1. METAMIZOL [Concomitant]
     Active Substance: METAMIZOLE SODIUM
     Dates: start: 20160417, end: 20160502
  2. TICAGRELOR. [Concomitant]
     Active Substance: TICAGRELOR
     Indication: MYOCARDIAL INFARCTION
     Dates: start: 20180324, end: 20180324
  3. METAMIZOL [Concomitant]
     Active Substance: METAMIZOLE SODIUM
     Indication: HEADACHE
     Dates: start: 20200801, end: 20200803
  4. OCRELIZUMAB. [Suspect]
     Active Substance: OCRELIZUMAB
     Indication: RELAPSING MULTIPLE SCLEROSIS
     Dosage: WEEK 1?ADMINISTER INFUSIONS ON DAYS 1 AND 15 FOR THE FIRST DOSE AND AS A SINGLE INFUSION OF 600 MG F
     Route: 042
     Dates: start: 20120907, end: 20120907
  5. DITROPAN [Concomitant]
     Active Substance: OXYBUTYNIN CHLORIDE
     Dates: start: 20190924
  6. BISOPROLOL [Concomitant]
     Active Substance: BISOPROLOL
     Dates: start: 20180324
  7. OCRELIZUMAB. [Suspect]
     Active Substance: OCRELIZUMAB
     Indication: RELAPSING MULTIPLE SCLEROSIS
     Dosage: OLE WEEK 0?ADMINISTER INFUSIONS ON DAYS 1 AND 15 FOR THE FIRST DOSE AND AS A SINGLE INFUSION OF 600
     Route: 042
     Dates: start: 20140725, end: 20140725
  8. METHYLPREDNISOLONE. [Concomitant]
     Active Substance: METHYLPREDNISOLONE
     Dosage: FURTHER ADMINISTRATIONS ON: 21/SEP/2012 (WEEK 2), 22/FEB/2013 (WEEK 24), 08/AUG/2013 (WEEK 48), 24/J
     Dates: start: 20120907
  9. LISINOPRIL. [Concomitant]
     Active Substance: LISINOPRIL
     Dates: start: 20180328
  10. HYDROXYZINE [Concomitant]
     Active Substance: HYDROXYZINE HYDROCHLORIDE
     Dosage: FURTHER ADMINISTRATIONS ON: 21/SEP/2012 (WEEK 2), 22/FEB/2013 (WEEK 24), 08/AUG/2013 (WEEK 48), 24/J
     Dates: start: 20120907
  11. TICAGRELOR. [Concomitant]
     Active Substance: TICAGRELOR
     Dates: start: 20161114, end: 20161119
  12. PLACEBO [Suspect]
     Active Substance: UNSPECIFIED INGREDIENT
     Indication: RELAPSING MULTIPLE SCLEROSIS
     Route: 058
     Dates: start: 20120907, end: 20140723
  13. INTERFERON BETA?1A [Suspect]
     Active Substance: INTERFERON BETA-1A
     Indication: RELAPSING MULTIPLE SCLEROSIS
     Route: 058
     Dates: start: 20120907, end: 20140723
  14. PARACETAMOL [Concomitant]
     Active Substance: ACETAMINOPHEN
     Dosage: FURTHER ADMINISTRATIONS ON: 21/SEP/2012 (WEEK 2), 22/FEB/2013 (WEEK 24), 08/AUG/2013 (WEEK 48), 24/J
     Dates: start: 20120907

REACTIONS (1)
  - Herpes simplex meningitis [Recovered/Resolved]

NARRATIVE: CASE EVENT DATE: 20200727
